FAERS Safety Report 14712397 (Version 8)
Quarter: 2019Q4

REPORT INFORMATION
  Report Type: Report from Study
  Country: FR (occurrence: FR)
  Receive Date: 20180404
  Receipt Date: 20191101
  Transmission Date: 20200122
  Serious: Yes (Death, Life-Threatening, Hospitalization, Other)
  Sender: FDA-Public Use
  Company Number: FR-BRISTOL-MYERS SQUIBB COMPANY-BMS-2008-000054

PATIENT
  Age: 72 Year
  Sex: Female

DRUGS (1)
  1. NIVOLUMAB [Suspect]
     Active Substance: NIVOLUMAB
     Indication: RENAL CANCER
     Dosage: 200 MG, EVERY 15 DAYS
     Route: 042
     Dates: start: 20180306, end: 20180326

REACTIONS (10)
  - Pneumoperitoneum [Recovered/Resolved with Sequelae]
  - Malnutrition [Recovered/Resolved]
  - Cholecystitis [Recovered/Resolved with Sequelae]
  - Hepatic function abnormal [Not Recovered/Not Resolved]
  - Asthenia [Recovered/Resolved]
  - General physical condition abnormal [Recovered/Resolved]
  - Nausea [Unknown]
  - Off label use [Unknown]
  - Malignant neoplasm progression [Fatal]
  - Vertigo [Unknown]

NARRATIVE: CASE EVENT DATE: 20180320
